FAERS Safety Report 8064914 (Version 3)
Quarter: 2014Q3

REPORT INFORMATION
  Report Type: Spontaneous
  Country: US (occurrence: US)
  Receive Date: 20110802
  Receipt Date: 20140918
  Transmission Date: 20150326
  Serious: Yes (Hospitalization)
  Sender: FDA-Public Use
  Company Number: US-GLAXOSMITHKLINE-A0871762A

PATIENT
  Sex: Female

DRUGS (1)
  1. AVANDIA [Suspect]
     Active Substance: ROSIGLITAZONE MALEATE
     Indication: TYPE 2 DIABETES MELLITUS
     Dosage: 4MG TWICE PER DAY
     Route: 048
     Dates: start: 20000229, end: 200712

REACTIONS (6)
  - Cerebrovascular accident [Unknown]
  - Implantable defibrillator insertion [Unknown]
  - Syncope [Unknown]
  - Transient ischaemic attack [Unknown]
  - Myocardial infarction [Not Recovered/Not Resolved]
  - Cardiac pacemaker insertion [Unknown]
